FAERS Safety Report 20968970 (Version 1)
Quarter: 2022Q2

REPORT INFORMATION
  Report Type: Spontaneous
  Country: ES (occurrence: ES)
  Receive Date: 20220616
  Receipt Date: 20220616
  Transmission Date: 20220720
  Serious: Yes (Other)
  Sender: FDA-Public Use
  Company Number: ES-FERRINGPH-2022FE02073

PATIENT
  Sex: Female

DRUGS (1)
  1. MESALAMINE [Suspect]
     Active Substance: MESALAMINE
     Indication: Colitis ulcerative
     Dosage: UNK
     Dates: start: 1997, end: 202010

REACTIONS (7)
  - Cytomegalovirus infection [Recovered/Resolved]
  - Pyoderma gangrenosum [Recovered/Resolved]
  - Colitis ulcerative [Recovered/Resolved]
  - Interstitial lung disease [Recovered/Resolved]
  - Erythema nodosum [Recovered/Resolved]
  - Sacroiliitis [Recovered/Resolved]
  - Arthritis [Recovered/Resolved]

NARRATIVE: CASE EVENT DATE: 20050101
